FAERS Safety Report 20222788 (Version 4)
Quarter: 2025Q4

REPORT INFORMATION
  Report Type: Report from Study
  Country: JP (occurrence: JP)
  Receive Date: 20211223
  Receipt Date: 20251010
  Transmission Date: 20260118
  Serious: Yes (Death)
  Sender: BIOGEN
  Company Number: JP-BIOGEN-2021BI01080405

PATIENT
  Age: 73 Year
  Sex: Male
  Weight: 73.4 kg

DRUGS (5)
  1. SPINRAZA [Suspect]
     Active Substance: NUSINERSEN
     Indication: Spinal muscular atrophy
     Route: 050
     Dates: start: 20210908, end: 20210908
  2. SPINRAZA [Suspect]
     Active Substance: NUSINERSEN
     Route: 050
     Dates: start: 20211006, end: 20211006
  3. SPINRAZA [Suspect]
     Active Substance: NUSINERSEN
     Route: 050
     Dates: start: 20211201, end: 20211201
  4. XYLOCAINE [Concomitant]
     Active Substance: LIDOCAINE HYDROCHLORIDE
     Indication: Anaesthesia procedure
     Route: 050
  5. TEPRENONE [Concomitant]
     Active Substance: TEPRENONE
     Route: 050

REACTIONS (3)
  - Cardiac failure chronic [Fatal]
  - Diabetic nephropathy [Fatal]
  - Pemphigoid [Fatal]

NARRATIVE: CASE EVENT DATE: 20211201
